FAERS Safety Report 10160475 (Version 1)
Quarter: 2014Q2

REPORT INFORMATION
  Report Type: Spontaneous
  Country: US (occurrence: US)
  Receive Date: 20140508
  Receipt Date: 20140508
  Transmission Date: 20141212
  Serious: No
  Sender: FDA-Public Use
  Company Number: US-009507513-2012SP022105

PATIENT
  Age: 3 Year
  Sex: Female

DRUGS (2)
  1. CLARITIN ORAL SOLUTION [Suspect]
     Indication: HYPERSENSITIVITY
     Dosage: 5 MG, ONCE
     Route: 048
     Dates: start: 20120315
  2. CLARITIN ORAL SOLUTION [Suspect]
     Dosage: 5 MG, ONCE
     Route: 048
     Dates: start: 20120315

REACTIONS (1)
  - Overdose [Unknown]
